FAERS Safety Report 9018378 (Version 1)
Quarter: 2013Q1

REPORT INFORMATION
  Report Type: Spontaneous
  Country: US (occurrence: None)
  Receive Date: 20130111
  Receipt Date: 20130111
  Transmission Date: 20140127
  Serious: Yes (Hospitalization)
  Sender: FDA-Public Use
  Company Number: None

PATIENT
  Age: 74 Year
  Sex: Female
  Weight: 79.1 kg

DRUGS (15)
  1. COUMADIN [Suspect]
     Indication: DEEP VEIN THROMBOSIS
     Dosage: 5MG DAILY PO   CHRONIC
     Route: 048
  2. COUMADIN [Suspect]
     Indication: PULMONARY EMBOLISM
     Dosage: 5MG DAILY PO   CHRONIC
     Route: 048
  3. ASPIRIN [Suspect]
     Dosage: 1 TABLET DAILY PO  CHRONIC
     Route: 048
  4. CELEBREX [Suspect]
     Dosage: 1 TABLET DAILY PO CHRONIC
     Route: 048
  5. ZOCOR [Concomitant]
  6. APAP [Concomitant]
  7. AMLODIPINE [Concomitant]
  8. B12 [Concomitant]
  9. TORRSEMIDE [Concomitant]
  10. PROTONIX [Concomitant]
  11. TOPIRAMATE [Concomitant]
  12. CARAFATE [Concomitant]
  13. VIT D3 [Concomitant]
  14. OXYBUTNIN [Concomitant]
  15. CELEXA [Concomitant]

REACTIONS (4)
  - International normalised ratio increased [None]
  - Anaemia [None]
  - Diverticulum intestinal [None]
  - Gastrointestinal haemorrhage [None]
